FAERS Safety Report 4913826-2 (Version None)
Quarter: 2006Q1

REPORT INFORMATION
  Report Type: 
  Country: None (occurrence: None)
  Receive Date: 20060113
  Receipt Date: 20051114
  Transmission Date: 20060701
  Serious: No
  Sender: FDA-Public Use
  Company Number: 2005SP003984

PATIENT
  Age: 66 Year
  Sex: Male

DRUGS (2)
  1. LUNESTA [Suspect]
     Dosage: HS; ORAL
     Route: 048
     Dates: start: 20051001
  2. EYE DROPS [Concomitant]

REACTIONS (1)
  - EYE PAIN [None]
